FAERS Safety Report 8445281 (Version 3)
Quarter: 2013Q4

REPORT INFORMATION
  Report Type: Spontaneous
  Country: DK (occurrence: None)
  Receive Date: 20120229
  Receipt Date: 20131016
  Transmission Date: 20140711
  Serious: Yes (Other)
  Sender: FDA-Public Use
  Company Number: 2012-000606

PATIENT
  Sex: 0

DRUGS (1)
  1. DIDRONEL [Suspect]
     Indication: OSTEOPOROSIS
     Route: 048

REACTIONS (9)
  - Acute myocardial infarction [None]
  - Arteriosclerosis coronary artery [None]
  - Jaw disorder [None]
  - Osteomyelitis [None]
  - Osteitis [None]
  - Periostitis [None]
  - Primary sequestrum [None]
  - Cardiac failure [None]
  - Inflammation [None]
